FAERS Safety Report 6536378-2 (Version None)
Quarter: 2010Q1

REPORT INFORMATION
  Report Type: 
  Country: None (occurrence: None)
  Receive Date: 20100113
  Receipt Date: 20091208
  Transmission Date: 20100710
  Serious: No
  Sender: FDA-Public Use
  Company Number: US-ALLERGAN-0916908US

PATIENT
  Age: 50 Year
  Sex: Female

DRUGS (1)
  1. LATISSE [Suspect]
     Indication: GROWTH OF EYELASHES
     Dosage: 1 UNK, UNK
     Dates: start: 20091130, end: 20091204

REACTIONS (3)
  - DRY EYE [None]
  - EYELID IRRITATION [None]
  - EYELIDS PRURITUS [None]
